FAERS Safety Report 7507952-1 (Version None)
Quarter: 2011Q2

REPORT INFORMATION
  Report Type: 
  Country: None (occurrence: None)
  Receive Date: 20110527
  Receipt Date: 20110513
  Transmission Date: 20111010
  Serious: No
  Sender: FDA-Public Use
  Company Number: JP-JNJFOC-20110507534

PATIENT

DRUGS (7)
  1. NAUZELIN [Concomitant]
     Route: 048
     Dates: start: 20110514
  2. FENTANYL-100 [Suspect]
     Route: 062
     Dates: start: 20110513, end: 20110517
  3. PENTAZOCINE LACTATE [Concomitant]
     Indication: ANALGESIC THERAPY
     Route: 065
     Dates: end: 20110517
  4. ATARAX [Concomitant]
     Indication: ANALGESIC THERAPY
     Route: 065
     Dates: end: 20110517
  5. FENTANYL-100 [Suspect]
     Indication: CANCER PAIN
     Route: 062
     Dates: start: 20110518
  6. PURSENNID [Concomitant]
     Indication: CONSTIPATION
     Route: 065
  7. NAUZELIN [Concomitant]
     Indication: PROPHYLAXIS OF NAUSEA AND VOMITING
     Route: 048
     Dates: start: 20110514

REACTIONS (1)
  - DRUG PRESCRIBING ERROR [None]
